FAERS Safety Report 6914749-X (Version None)
Quarter: 2010Q3

REPORT INFORMATION
  Report Type: 
  Country: None (occurrence: None)
  Receive Date: 20100809
  Receipt Date: 20100728
  Transmission Date: 20110219
  Serious: Yes (Hospitalization, Other)
  Sender: FDA-Public Use
  Company Number: FR-AMGEN-QUU429548

PATIENT
  Sex: Male

DRUGS (6)
  1. ENBREL [Suspect]
     Indication: ANKYLOSING SPONDYLITIS
     Route: 058
     Dates: start: 20060601, end: 20100302
  2. BI-PROFENID [Concomitant]
     Dosage: UNKNOWN
     Route: 048
  3. SPIRIVA [Concomitant]
     Dosage: UNKNOWN
  4. BRICANYL [Concomitant]
     Dosage: UNKNOWN
  5. OMEPRAZOLE [Concomitant]
     Dosage: UNKNOWN
     Route: 048
  6. COKENZEN [Concomitant]
     Dosage: UNKNOWN
     Route: 048

REACTIONS (3)
  - CHRONIC OBSTRUCTIVE PULMONARY DISEASE [None]
  - CONDITION AGGRAVATED [None]
  - PULMONARY SARCOIDOSIS [None]
